FAERS Safety Report 9693311 (Version 2)
Quarter: 2013Q4

REPORT INFORMATION
  Report Type: Report from Study
  Country: US (occurrence: US)
  Receive Date: 20131118
  Receipt Date: 20131118
  Transmission Date: 20140711
  Serious: Yes (Hospitalization, Other)
  Sender: FDA-Public Use
  Company Number: US-ROCHE-1230646

PATIENT
  Age: 35 Year
  Sex: Female
  Weight: 77.18 kg

DRUGS (7)
  1. PEGASYS [Suspect]
     Indication: CHRONIC HEPATITIS C
     Route: 065
     Dates: start: 20130329
  2. PEGASYS [Suspect]
     Route: 065
  3. RIBAVIRIN [Suspect]
     Indication: CHRONIC HEPATITIS C
     Route: 048
     Dates: start: 20130329
  4. BOCEPREVIR [Suspect]
     Indication: CHRONIC HEPATITIS C
     Route: 065
     Dates: start: 20130427
  5. BOCEPREVIR [Suspect]
     Route: 065
     Dates: start: 20130916
  6. RISPERDAL [Concomitant]
     Indication: BIPOLAR DISORDER
  7. CELEXA (UNITED STATES) [Concomitant]
     Indication: DEPRESSION

REACTIONS (14)
  - Haemoglobin decreased [Recovering/Resolving]
  - Thyroid function test abnormal [Unknown]
  - Dysarthria [Unknown]
  - Asthenia [Unknown]
  - Nausea [Not Recovered/Not Resolved]
  - Nausea [Recovering/Resolving]
  - Yellow skin [Unknown]
  - Pallor [Unknown]
  - White blood cell count decreased [Not Recovered/Not Resolved]
  - Fatigue [Unknown]
  - Dyspnoea [Unknown]
  - Speech disorder [Unknown]
  - Hallucination, visual [Unknown]
  - Visual acuity reduced [Unknown]
